FAERS Safety Report 4807165-8 (Version None)
Quarter: 2005Q4

REPORT INFORMATION
  Report Type: 
  Country: None (occurrence: None)
  Receive Date: 20051019
  Receipt Date: 20051010
  Transmission Date: 20060501
  Serious: Yes (Life-Threatening, Hospitalization)
  Sender: FDA-Public Use
  Company Number: UKP05000343

PATIENT
  Age: 91 Year
  Sex: Male

DRUGS (4)
  1. DIDRONEL PMO (ETIDRONAT DISODIUM/CALCIUM CARBONATE CYCLICAL) TABLET, 4 [Suspect]
     Dosage: UNKNOWN
     Route: 065
  2. DIURETICS [Concomitant]
  3. CHOLESTEROL-AND TRIGLYCERIDE REDUCERS [Concomitant]
  4. DRUG NOS [Concomitant]

REACTIONS (2)
  - ASTHMA [None]
  - PNEUMONIA [None]
